FAERS Safety Report 8384922-5 (Version None)
Quarter: 2012Q2

REPORT INFORMATION
  Report Type: 
  Country: None (occurrence: None)
  Receive Date: 20120524
  Receipt Date: 20120522
  Transmission Date: 20120825
  Serious: Yes (Other)
  Sender: FDA-Public Use
  Company Number: FI-PFIZER INC-2012105601

PATIENT
  Age: 73 Year
  Sex: Male

DRUGS (10)
  1. KALCIPOS-D [Concomitant]
  2. ALFUZOSIN HCL [Concomitant]
  3. FLUTICASONE PROPIONATE/SALMETEROL [Concomitant]
  4. LYRICA [Suspect]
     Indication: PROCEDURAL PAIN
     Dosage: 75 MG, 1X/DAY, IN THE EVENINGS
  5. PERSANTINE [Concomitant]
  6. CRESTOR [Concomitant]
  7. GLUCOSAMINE [Concomitant]
  8. PARATABS [Concomitant]
  9. PRIMASPAN [Concomitant]
  10. FLUTICASONE PROPIONATE [Concomitant]

REACTIONS (3)
  - EYE DISORDER [None]
  - CATARACT [None]
  - VISION BLURRED [None]
